FAERS Safety Report 6249913-9 (Version None)
Quarter: 2009Q2

REPORT INFORMATION
  Report Type: 
  Country: None (occurrence: None)
  Receive Date: 20090629
  Receipt Date: 20090616
  Transmission Date: 20091009
  Serious: Yes (Other)
  Sender: FDA-Public Use
  Company Number: PHEH2009US06278

PATIENT
  Sex: Female

DRUGS (1)
  1. HYPOTEARS (NVO) [Suspect]
     Indication: DRY EYE
     Dosage: UNK, UNK

REACTIONS (2)
  - DRY EYE [None]
  - EYE OPERATION [None]
